FAERS Safety Report 11212860 (Version 1)
Quarter: 2015Q2

REPORT INFORMATION
  Report Type: Spontaneous
  Country: US (occurrence: None)
  Receive Date: 20150622
  Receipt Date: 20150622
  Transmission Date: 20150821
  Serious: No
  Sender: FDA-Public Use
  Company Number: None

PATIENT
  Age: 31 Month
  Sex: Male
  Weight: 16.56 kg

DRUGS (1)
  1. CETIRIZINE HYDROCHLORIDE (GENERIC FOR ZYRTEC) 1 MG/ML [Suspect]
     Active Substance: CETIRIZINE HYDROCHLORIDE
     Indication: SEASONAL ALLERGY
     Route: 048
     Dates: start: 201504, end: 201505

REACTIONS (1)
  - Dysphemia [None]

NARRATIVE: CASE EVENT DATE: 201505
